FAERS Safety Report 8415743-2 (Version None)
Quarter: 2012Q2

REPORT INFORMATION
  Report Type: 
  Country: None (occurrence: None)
  Receive Date: 20120606
  Receipt Date: 20120524
  Transmission Date: 20120825
  Serious: Yes (Death)
  Sender: FDA-Public Use
  Company Number: JP-ASTELLAS-2012US005174

PATIENT
  Age: 20 Year
  Sex: Female

DRUGS (17)
  1. ALKERAN [Suspect]
     Indication: PRODUCT USED FOR UNKNOWN INDICATION
     Dosage: 100 MG, UID/QD
     Route: 065
     Dates: start: 20110913
  2. IMMUNE GLOBULIN NOS [Suspect]
     Indication: PRODUCT USED FOR UNKNOWN INDICATION
     Dosage: 60 MG, UID/QD
     Route: 042
     Dates: start: 20110913
  3. ANTI-THYMOCYTE GLOBULIN NOS [Concomitant]
     Indication: PRODUCT USED FOR UNKNOWN INDICATION
     Dosage: UNK
     Route: 065
     Dates: start: 20110913
  4. AMBISOME [Interacting]
     Indication: FEBRILE NEUTROPENIA
     Dosage: 124 MG, UNKNOWN/D
     Route: 042
     Dates: start: 20111001, end: 20111015
  5. MEROPENEM [Suspect]
     Indication: FEBRILE NEUTROPENIA
     Dosage: 3 G, UID/QD
     Route: 042
     Dates: start: 20110924, end: 20111015
  6. COTRIM [Concomitant]
     Indication: PRODUCT USED FOR UNKNOWN INDICATION
     Dosage: UNK
     Route: 065
     Dates: start: 20110911, end: 20110920
  7. HEPAGUMIN [Concomitant]
     Indication: PRODUCT USED FOR UNKNOWN INDICATION
     Dosage: UNK
     Route: 065
     Dates: start: 20110912, end: 20110926
  8. SANDIMMUNE [Concomitant]
     Indication: PRODUCT USED FOR UNKNOWN INDICATION
     Dosage: UNK
     Route: 065
     Dates: start: 20110920, end: 20111017
  9. LANSOPRAZOLE [Concomitant]
     Indication: PRODUCT USED FOR UNKNOWN INDICATION
     Dosage: UNK
     Route: 065
     Dates: start: 20110929, end: 20111020
  10. ACICLOVIN NICHIIKO [Concomitant]
     Indication: PRODUCT USED FOR UNKNOWN INDICATION
     Dosage: UNK
     Route: 065
     Dates: start: 20110913, end: 20110929
  11. FLUDARA [Suspect]
     Indication: PRODUCT USED FOR UNKNOWN INDICATION
     Dosage: 20 MG, UNKNOWN/D
     Route: 065
     Dates: start: 20110913
  12. VANCOMYCIN [Concomitant]
     Indication: PRODUCT USED FOR UNKNOWN INDICATION
     Dosage: UNK
     Route: 065
     Dates: start: 20110927, end: 20111017
  13. LASIX [Concomitant]
     Indication: PRODUCT USED FOR UNKNOWN INDICATION
     Dosage: UNK
     Route: 065
     Dates: start: 20111001, end: 20111019
  14. METHOTREXATE [Concomitant]
     Indication: PRODUCT USED FOR UNKNOWN INDICATION
     Dosage: UNK
     Route: 065
     Dates: start: 20110913
  15. GRAN [Concomitant]
     Indication: PRODUCT USED FOR UNKNOWN INDICATION
     Dosage: UNK
     Route: 065
     Dates: start: 20110922, end: 20111020
  16. MORPHINE HCL ELIXIR [Concomitant]
     Indication: PRODUCT USED FOR UNKNOWN INDICATION
     Dosage: UNK
     Route: 065
     Dates: start: 20110927, end: 20111019
  17. CYCLOSPORINE [Concomitant]
     Indication: PRODUCT USED FOR UNKNOWN INDICATION
     Dosage: UNK
     Route: 065
     Dates: start: 20110913

REACTIONS (2)
  - BLOOD CREATININE INCREASED [None]
  - HEPATIC FUNCTION ABNORMAL [None]
